FAERS Safety Report 9963397 (Version 1)
Quarter: 2014Q1

REPORT INFORMATION
  Report Type: Spontaneous
  Country: FR (occurrence: FR)
  Receive Date: 20140305
  Receipt Date: 20140305
  Transmission Date: 20141002
  Serious: Yes (Hospitalization)
  Sender: FDA-Public Use
  Company Number: FR-BRISTOL-MYERS SQUIBB COMPANY-20357562

PATIENT
  Age: 84 Year
  Sex: Male

DRUGS (11)
  1. GLUCOPHAGE TABS 500 MG [Suspect]
     Route: 048
     Dates: end: 20140123
  2. SIMVASTATIN [Suspect]
     Dates: end: 20140123
  3. ESTRACYT [Suspect]
     Dosage: 140MG CAPS ( 2CAPS TWICE DAILY)
     Dates: start: 201303
  4. GLICLAZIDE [Concomitant]
  5. EUPANTOL [Concomitant]
  6. KARDEGIC [Concomitant]
  7. INDAPAMIDE [Concomitant]
  8. STILNOX [Concomitant]
  9. FORLAX [Concomitant]
  10. SPASFON [Concomitant]
  11. SERETIDE [Concomitant]

REACTIONS (2)
  - Cholestasis [Unknown]
  - Hepatic steatosis [Unknown]
